FAERS Safety Report 9735987 (Version 3)
Quarter: 2014Q2

REPORT INFORMATION
  Report Type: Report from Study
  Country: US (occurrence: US)
  Receive Date: 20131206
  Receipt Date: 20140605
  Transmission Date: 20141212
  Serious: Yes (Hospitalization, Other)
  Sender: FDA-Public Use
  Company Number: US-ACTELION-A-NJ2013-91991

PATIENT
  Age: 42 Year
  Sex: Female

DRUGS (1)
  1. VELETRI [Suspect]
     Indication: PULMONARY ARTERIAL HYPERTENSION
     Dosage: 11 NG/KG, UNK
     Route: 042
     Dates: start: 20130823

REACTIONS (3)
  - Anaesthetic complication [Unknown]
  - Oxygen saturation decreased [Unknown]
  - Lymphadenopathy [Unknown]
